FAERS Safety Report 16911737 (Version 3)
Quarter: 2020Q4

REPORT INFORMATION
  Report Type: Other
  Country: US (occurrence: US)
  Receive Date: 20191014
  Receipt Date: 20201116
  Transmission Date: 20210113
  Serious: No
  Sender: FDA-Public Use
  Company Number: US-ROCHE-2430782

PATIENT
  Sex: Female
  Weight: 98 kg

DRUGS (9)
  1. ACTEMRA [Suspect]
     Active Substance: TOCILIZUMAB
  2. ACTEMRA [Suspect]
     Active Substance: TOCILIZUMAB
  3. ACTEMRA [Suspect]
     Active Substance: TOCILIZUMAB
     Indication: BLINDNESS
  4. ACTEMRA [Suspect]
     Active Substance: TOCILIZUMAB
  5. ACTEMRA [Suspect]
     Active Substance: TOCILIZUMAB
  6. ACTEMRA [Suspect]
     Active Substance: TOCILIZUMAB
  7. ACTEMRA [Suspect]
     Active Substance: TOCILIZUMAB
     Indication: ACUTE HAEMORRHAGIC LEUKOENCEPHALITIS
     Dosage: INJECT 162MG SUBCUTANEOUSLY EVERY 14 DAY(S)
     Route: 058
  8. ACTEMRA [Suspect]
     Active Substance: TOCILIZUMAB
     Indication: DEMYELINATION
  9. ACTEMRA [Suspect]
     Active Substance: TOCILIZUMAB

REACTIONS (4)
  - Off label use [Unknown]
  - Renal cyst [Unknown]
  - Gastric disorder [Unknown]
  - Intentional product use issue [Unknown]
